FAERS Safety Report 5676931-1 (Version None)
Quarter: 2008Q1

REPORT INFORMATION
  Report Type: 
  Country: None (occurrence: None)
  Receive Date: 20080324
  Receipt Date: 20080319
  Transmission Date: 20080703
  Serious: Yes (Hospitalization)
  Sender: FDA-Public Use
  Company Number: PT-BRISTOL-MYERS SQUIBB COMPANY-14118160

PATIENT
  Age: 61 Year
  Sex: Female

DRUGS (3)
  1. TRIMETHOPRIM + SULFAMETHOXAZOLE [Suspect]
     Indication: RESPIRATORY TRACT INFECTION
  2. AMOXICILLIN [Suspect]
     Indication: RESPIRATORY TRACT INFECTION
  3. CLARITHROMYCIN [Suspect]
     Indication: RESPIRATORY TRACT INFECTION

REACTIONS (1)
  - DRUG RASH WITH EOSINOPHILIA AND SYSTEMIC SYMPTOMS [None]
